FAERS Safety Report 15196636 (Version 1)
Quarter: 2018Q3

REPORT INFORMATION
  Report Type: Spontaneous
  Country: IT (occurrence: IT)
  Receive Date: 20180725
  Receipt Date: 20180725
  Transmission Date: 20181010
  Serious: Yes (Other)
  Sender: FDA-Public Use
  Company Number: PHHY2018IT050743

PATIENT
  Age: 54 Year
  Sex: Male

DRUGS (1)
  1. COSENTYX [Suspect]
     Active Substance: SECUKINUMAB
     Indication: PRODUCT USED FOR UNKNOWN INDICATION
     Dosage: UNK
     Route: 065
     Dates: start: 20180604, end: 20180625

REACTIONS (6)
  - Inflammation [Unknown]
  - Pruritus [Unknown]
  - Ankylosing spondylitis [Unknown]
  - Erythema [Unknown]
  - Contusion [Unknown]
  - Burning sensation [Unknown]
